FAERS Safety Report 18695702 (Version 1)
Quarter: 2021Q1

REPORT INFORMATION
  Report Type: Spontaneous
  Country: US (occurrence: US)
  Receive Date: 20210104
  Receipt Date: 20210104
  Transmission Date: 20210419
  Serious: Yes (Hospitalization)
  Sender: FDA-Public Use
  Company Number: US-MYLANLABS-2020M1106403

PATIENT
  Age: 50 Year
  Sex: Male

DRUGS (3)
  1. PREDNISONE. [Concomitant]
     Active Substance: PREDNISONE
     Indication: IMMUNOSUPPRESSANT DRUG THERAPY
     Dosage: 10 DAILY (UNIT NOT STATED)
     Route: 065
  2. TACROLIMUS. [Concomitant]
     Active Substance: TACROLIMUS
     Indication: IMMUNOSUPPRESSANT DRUG THERAPY
     Dosage: 3MG EVERY MORNING (QAM) + 2MG EVERY NIGHT (QPM)
     Route: 065
  3. MYCOPHENOLATE MOFETIL. [Suspect]
     Active Substance: MYCOPHENOLATE MOFETIL
     Indication: IMMUNOSUPPRESSANT DRUG THERAPY
     Dosage: 1000 MILLIGRAM, BID
     Route: 065

REACTIONS (7)
  - Haematochezia [Recovering/Resolving]
  - Peritonitis [Recovering/Resolving]
  - Small intestinal haemorrhage [Recovered/Resolved]
  - Enterocolitis [Recovering/Resolving]
  - Shock haemorrhagic [Recovering/Resolving]
  - Serositis [Recovering/Resolving]
  - Ileal ulcer [Recovering/Resolving]
